FAERS Safety Report 4448539-7 (Version None)
Quarter: 2004Q3

REPORT INFORMATION
  Report Type: 
  Country: None (occurrence: None)
  Receive Date: 20040729
  Receipt Date: 20031201
  Transmission Date: 20050211
  Serious: Yes (Death)
  Sender: FDA-Public Use
  Company Number: USA-2003-0011601

PATIENT
  Age: 41 Year
  Sex: Female
  Weight: 88 kg

DRUGS (8)
  1. MORPHINE SULFATE(SIMILAR TO NDA 19-516)(MORPHINE SULFATE) [Suspect]
  2. COCAINE (COCAINE) [Suspect]
  3. BENZODIAZEPINE DERIVATIVES (BENZODIAZEPINE) [Suspect]
  4. PROPOXYPHENE HCL [Suspect]
  5. CODEINE (CODEINE) [Suspect]
  6. CAFFEINE (CAFFEINE) [Suspect]
  7. NICOTINE [Suspect]
  8. ACETAMINOPHEN [Suspect]

REACTIONS (2)
  - ACCIDENTAL OVERDOSE [None]
  - MULTIPLE DRUG OVERDOSE [None]
